FAERS Safety Report 18437764 (Version 1)
Quarter: 2020Q4

REPORT INFORMATION
  Report Type: Spontaneous
  Country: US (occurrence: US)
  Receive Date: 20201028
  Receipt Date: 20201028
  Transmission Date: 20210114
  Serious: Yes (Other)
  Sender: FDA-Public Use
  Company Number: US-ASTRAZENECA-2020SF38471

PATIENT
  Sex: Female
  Weight: 86.2 kg

DRUGS (20)
  1. LYRICA [Suspect]
     Active Substance: PREGABALIN
     Indication: NERVE INJURY
     Dosage: 75MG DOSE OF LYRICA A
     Route: 065
  2. LYRICA [Suspect]
     Active Substance: PREGABALIN
     Indication: NERVE INJURY
     Route: 065
  3. CELECOXIB. [Concomitant]
     Active Substance: CELECOXIB
     Indication: INFLAMMATION
     Dosage: 200MG CAPSULE ONE CAPSULE EVERY DAY
  4. VITAMIN B12 [Concomitant]
     Active Substance: CYANOCOBALAMIN
     Indication: PRODUCT USED FOR UNKNOWN INDICATION
     Dosage: 1000 MCG COATED TABLET
  5. TYLENOL [Concomitant]
     Active Substance: ACETAMINOPHEN
     Indication: PAIN
  6. PULMICORT FLEXHALER [Suspect]
     Active Substance: BUDESONIDE
     Dosage: 180.0UG UNKNOWN
     Route: 055
  7. SIMVASTATIN. [Concomitant]
     Active Substance: SIMVASTATIN
     Dosage: 20MG TABLET ONCE A DAY
  8. ALLEGRA [Concomitant]
     Active Substance: FEXOFENADINE HYDROCHLORIDE
     Indication: HYPERSENSITIVITY
     Dosage: 180MG TABLET ONCE A DAY
  9. VITAMIN B6 [Concomitant]
     Active Substance: PYRIDOXINE HYDROCHLORIDE
     Indication: PRODUCT USED FOR UNKNOWN INDICATION
     Dosage: 100MG TABLET
  10. OMEGA 3 [Concomitant]
     Active Substance: OMEGA-3 FATTY ACIDS
     Dosage: 1080MG SOFT GEL
  11. CALCIUM WITH VITAMIN D [Concomitant]
     Active Substance: CALCIUM\VITAMIN D
     Indication: VITAMIN D DEFICIENCY
     Dosage: 600MG CALCIUM AND 20MG MCG OF VITAMIN D
  12. VITAMIN C [Concomitant]
     Active Substance: ASCORBIC ACID
     Dosage: 500MG EVERY DAY
  13. KLOR-CON [Concomitant]
     Active Substance: POTASSIUM CHLORIDE
     Indication: BLOOD POTASSIUM DECREASED
     Dosage: M-10 TABLET , ONE TABLET BY MOUTH THREE TIMES A DAY
  14. VITAMIN D3 [Concomitant]
     Active Substance: CHOLECALCIFEROL
     Dosage: 50MCG AND 2000 IU SOFT GEL A DAY
  15. EPIPEN [Concomitant]
     Active Substance: EPINEPHRINE
     Dosage: 0.3MG AUTO INJECTOR
  16. ENALAPRIL MALEATE. [Concomitant]
     Active Substance: ENALAPRIL MALEATE
     Indication: BLOOD PRESSURE MEASUREMENT
     Dosage: 20MG TABLET , ONE TABLET BY MOUTH EVERY DAY
  17. PREGABALIN. [Suspect]
     Active Substance: PREGABALIN
     Indication: NERVE INJURY
     Dosage: 300MG,STARTED AT 50MG AND IT WAS UPPED TO 100MG, OR IT COULD HAVE BEEN 75MG, 100MG, AND THEN 150M...
     Route: 065
     Dates: start: 2011
  18. ASPIRIN. [Concomitant]
     Active Substance: ASPIRIN
     Indication: PAIN
  19. FUROSEMIDE. [Concomitant]
     Active Substance: FUROSEMIDE
     Dosage: 20MG TABLET
  20. CYCLOBENZAPRINE. [Concomitant]
     Active Substance: CYCLOBENZAPRINE
     Indication: MUSCLE SPASMS
     Dosage: 10MG TABLET WHEN NEEDED

REACTIONS (20)
  - Feeling hot [Unknown]
  - Memory impairment [Unknown]
  - Nerve injury [Unknown]
  - Inflammation [Unknown]
  - Hypertension [Unknown]
  - Cataract [Unknown]
  - Vitamin D deficiency [Unknown]
  - Dry skin [Unknown]
  - Knuckle pads [Unknown]
  - Back injury [Unknown]
  - Paraesthesia [Unknown]
  - Insomnia [Unknown]
  - Infection [Unknown]
  - Carpal tunnel syndrome [Unknown]
  - Gait disturbance [Unknown]
  - Asthma [Unknown]
  - Oropharyngeal discomfort [Unknown]
  - Hypoaesthesia [Unknown]
  - Intentional product misuse [Unknown]
  - Pain in extremity [Unknown]
